FAERS Safety Report 21944256 (Version 2)
Quarter: 2023Q1

REPORT INFORMATION
  Report Type: Spontaneous
  Country: JP (occurrence: JP)
  Receive Date: 20230202
  Receipt Date: 20230222
  Transmission Date: 20230418
  Serious: Yes (Hospitalization, Other)
  Sender: FDA-Public Use
  Company Number: JP-TEVA-2023-JP-2851710

PATIENT
  Age: 8 Decade
  Sex: Female

DRUGS (3)
  1. IMATINIB [Suspect]
     Active Substance: IMATINIB
     Indication: Gastrointestinal stromal tumour
     Route: 065
  2. IMATINIB [Suspect]
     Active Substance: IMATINIB
     Dosage: 200 MILLIGRAM DAILY; ONCE A DAY
     Route: 065
  3. IMATINIB [Suspect]
     Active Substance: IMATINIB
     Dosage: 100 MILLIGRAM DAILY; ONCE A DAY
     Route: 065

REACTIONS (2)
  - Febrile neutropenia [Unknown]
  - Drug resistance [Unknown]
